FAERS Safety Report 8882246 (Version 1)
Quarter: 2012Q4

REPORT INFORMATION
  Report Type: 
  Country: DK (occurrence: DK)
  Receive Date: 20121102
  Receipt Date: 20121102
  Transmission Date: 20130627
  Serious: Yes (Other)
  Sender: FDA-Public Use
  Company Number: PHHY2012DK098926

PATIENT
  Age: 63 Year
  Sex: Female

DRUGS (1)
  1. SERTRALIN [Suspect]
     Indication: DEPRESSION
     Dosage: 100 mg QD

REACTIONS (3)
  - Deafness [Recovered/Resolved with Sequelae]
  - Hearing impaired [Recovered/Resolved with Sequelae]
  - Tinnitus [Recovered/Resolved with Sequelae]
